FAERS Safety Report 12111188 (Version 1)
Quarter: 2016Q1

REPORT INFORMATION
  Report Type: Spontaneous
  Country: US (occurrence: US)
  Receive Date: 20160224
  Receipt Date: 20160224
  Transmission Date: 20160526
  Serious: Yes (Other)
  Sender: FDA-Public Use
  Company Number: US-LANTHEUS-LMI-2015-00301

PATIENT
  Age: 64 Year
  Sex: Male

DRUGS (3)
  1. DEFINITY [Suspect]
     Active Substance: PERFLUTREN
     Indication: ECHOCARDIOGRAM
     Dosage: 1.5 ML DEFINITY DILUTED IN 7.5 ML NORMAL SALINE
     Route: 040
     Dates: start: 20150601, end: 20150601
  2. DEFINITY [Suspect]
     Active Substance: PERFLUTREN
     Dosage: 1.5 ML DEFINITY DILUTED IN 7.5 ML NORMAL SALINE
     Route: 040
     Dates: start: 20150601, end: 20150601
  3. DEFINITY [Suspect]
     Active Substance: PERFLUTREN
     Dosage: 1.5 ML DEFINITY DILUTED IN 7.5 ML NORMAL SALINE
     Route: 040
     Dates: start: 20150601, end: 20150601

REACTIONS (3)
  - Loss of consciousness [Recovered/Resolved]
  - Tonic clonic movements [Recovered/Resolved]
  - Apnoea [Recovered/Resolved]

NARRATIVE: CASE EVENT DATE: 20150601
